FAERS Safety Report 4718965-7 (Version None)
Quarter: 2005Q3

REPORT INFORMATION
  Report Type: 
  Country: None (occurrence: None)
  Receive Date: 20050719
  Receipt Date: 20050703
  Transmission Date: 20060218
  Serious: Yes (Hospitalization, Other)
  Sender: FDA-Public Use
  Company Number: 2005092179

PATIENT
  Sex: Female

DRUGS (2)
  1. ZELDOX                      (ZIPRASIDONE) [Suspect]
     Indication: SCHIZOPHRENIA
     Dosage: 160 MG (40 MG, 2 IN 1 D), ORAL
     Route: 048
  2. RIVOTRIL (CLONAZEPAM) [Suspect]
     Indication: ILL-DEFINED DISORDER
     Dosage: ORAL
     Route: 048

REACTIONS (3)
  - CONDITION AGGRAVATED [None]
  - SCHIZOPHRENIA [None]
  - SUICIDE ATTEMPT [None]
